FAERS Safety Report 15560216 (Version 45)
Quarter: 2022Q2

REPORT INFORMATION
  Report Type: Spontaneous
  Country: CA (occurrence: CA)
  Receive Date: 20181029
  Receipt Date: 20220624
  Transmission Date: 20220720
  Serious: Yes (Life-Threatening, Hospitalization, Disabling, Other)
  Sender: FDA-Public Use
  Company Number: CA-JNJFOC-20181030392

PATIENT
  Age: 43 Year
  Sex: Female
  Weight: 70 kg

DRUGS (279)
  1. CETIRIZINE HYDROCHLORIDE [Suspect]
     Active Substance: CETIRIZINE HYDROCHLORIDE
     Indication: Rheumatoid arthritis
     Route: 065
  2. CETIRIZINE HYDROCHLORIDE [Suspect]
     Active Substance: CETIRIZINE HYDROCHLORIDE
     Indication: Product used for unknown indication
     Route: 065
  3. CETIRIZINE HYDROCHLORIDE [Suspect]
     Active Substance: CETIRIZINE HYDROCHLORIDE
     Route: 065
  4. CETIRIZINE HYDROCHLORIDE [Suspect]
     Active Substance: CETIRIZINE HYDROCHLORIDE
     Route: 048
  5. CETIRIZINE HYDROCHLORIDE [Suspect]
     Active Substance: CETIRIZINE HYDROCHLORIDE
     Indication: Rheumatoid arthritis
     Route: 048
  6. CETIRIZINE HYDROCHLORIDE [Suspect]
     Active Substance: CETIRIZINE HYDROCHLORIDE
     Indication: Product used for unknown indication
     Route: 065
  7. CETIRIZINE HYDROCHLORIDE [Suspect]
     Active Substance: CETIRIZINE HYDROCHLORIDE
     Route: 065
  8. CETIRIZINE HYDROCHLORIDE [Suspect]
     Active Substance: CETIRIZINE HYDROCHLORIDE
     Route: 065
  9. CETIRIZINE HYDROCHLORIDE [Suspect]
     Active Substance: CETIRIZINE HYDROCHLORIDE
     Route: 065
  10. REMICADE [Suspect]
     Active Substance: INFLIXIMAB
     Indication: Rheumatoid arthritis
     Dosage: POWDER FOR SOLUTION INTRAVENOUS
     Route: 042
  11. REMICADE [Suspect]
     Active Substance: INFLIXIMAB
  12. REMICADE [Suspect]
     Active Substance: INFLIXIMAB
  13. REMICADE [Suspect]
     Active Substance: INFLIXIMAB
     Route: 042
  14. SIMPONI [Suspect]
     Active Substance: GOLIMUMAB
     Indication: Rheumatoid arthritis
     Route: 058
  15. SIMPONI [Suspect]
     Active Substance: GOLIMUMAB
     Indication: Product used for unknown indication
     Dosage: SOLUTION SUBCUTANEOUS
     Route: 058
  16. SIMPONI [Suspect]
     Active Substance: GOLIMUMAB
     Route: 058
  17. SIMPONI [Suspect]
     Active Substance: GOLIMUMAB
     Route: 042
  18. STELARA [Suspect]
     Active Substance: USTEKINUMAB
     Indication: Product used for unknown indication
     Route: 058
  19. STELARA [Suspect]
     Active Substance: USTEKINUMAB
     Indication: Rheumatoid arthritis
     Route: 065
  20. CETIRIZINE HYDROCHLORIDE\PSEUDOEPHEDRINE HYDROCHLORIDE [Suspect]
     Active Substance: CETIRIZINE HYDROCHLORIDE\PSEUDOEPHEDRINE HYDROCHLORIDE
     Indication: Rheumatoid arthritis
     Route: 065
  21. ACETAMINOPHEN [Suspect]
     Active Substance: ACETAMINOPHEN
     Indication: Product used for unknown indication
     Route: 065
  22. ACETAMINOPHEN [Suspect]
     Active Substance: ACETAMINOPHEN
     Route: 048
  23. ACETAMINOPHEN [Suspect]
     Active Substance: ACETAMINOPHEN
     Route: 065
  24. CETIRIZINE HYDROCHLORIDE\PSEUDOEPHEDRINE HYDROCHLORIDE [Suspect]
     Active Substance: CETIRIZINE HYDROCHLORIDE\PSEUDOEPHEDRINE HYDROCHLORIDE
     Indication: Rheumatoid arthritis
     Route: 065
  25. CETIRIZINE HYDROCHLORIDE\PSEUDOEPHEDRINE HYDROCHLORIDE [Suspect]
     Active Substance: CETIRIZINE HYDROCHLORIDE\PSEUDOEPHEDRINE HYDROCHLORIDE
     Route: 065
  26. HYDROCORTISONE ACETATE [Suspect]
     Active Substance: HYDROCORTISONE ACETATE
     Indication: Rheumatoid arthritis
     Route: 058
  27. HYDROCORTISONE ACETATE [Suspect]
     Active Substance: HYDROCORTISONE ACETATE
     Indication: Product used for unknown indication
     Route: 058
  28. SIMPONI [Suspect]
     Active Substance: GOLIMUMAB
     Indication: Rheumatoid arthritis
     Route: 042
  29. ACTEMRA [Suspect]
     Active Substance: TOCILIZUMAB
     Indication: Rheumatoid arthritis
     Route: 058
  30. ACTEMRA [Suspect]
     Active Substance: TOCILIZUMAB
     Indication: Product used for unknown indication
     Route: 065
  31. ACTEMRA [Suspect]
     Active Substance: TOCILIZUMAB
     Route: 058
  32. ACTEMRA [Suspect]
     Active Substance: TOCILIZUMAB
     Route: 042
  33. ACTEMRA [Suspect]
     Active Substance: TOCILIZUMAB
     Route: 061
  34. ACTEMRA [Suspect]
     Active Substance: TOCILIZUMAB
     Route: 058
  35. PREDNISONE [Suspect]
     Active Substance: PREDNISONE
     Indication: Rheumatoid arthritis
     Route: 065
  36. PREDNISONE [Suspect]
     Active Substance: PREDNISONE
     Indication: Product used for unknown indication
     Route: 065
  37. PREDNISONE [Suspect]
     Active Substance: PREDNISONE
     Route: 065
  38. PREDNISONE [Suspect]
     Active Substance: PREDNISONE
     Route: 065
  39. ARAVA [Suspect]
     Active Substance: LEFLUNOMIDE
     Indication: Rheumatoid arthritis
     Route: 048
  40. ARAVA [Suspect]
     Active Substance: LEFLUNOMIDE
     Indication: Product used for unknown indication
     Route: 065
  41. ARAVA [Suspect]
     Active Substance: LEFLUNOMIDE
     Route: 048
  42. ARAVA [Suspect]
     Active Substance: LEFLUNOMIDE
     Route: 065
  43. ARAVA [Suspect]
     Active Substance: LEFLUNOMIDE
     Route: 048
  44. ARAVA [Suspect]
     Active Substance: LEFLUNOMIDE
     Route: 065
  45. ARAVA [Suspect]
     Active Substance: LEFLUNOMIDE
     Route: 065
  46. CIMZIA [Suspect]
     Active Substance: CERTOLIZUMAB PEGOL
     Indication: Rheumatoid arthritis
     Route: 058
  47. CIMZIA [Suspect]
     Active Substance: CERTOLIZUMAB PEGOL
     Indication: Psoriasis
     Route: 058
  48. CIMZIA [Suspect]
     Active Substance: CERTOLIZUMAB PEGOL
     Route: 058
  49. CIMZIA [Suspect]
     Active Substance: CERTOLIZUMAB PEGOL
     Route: 058
  50. DESOXIMETASONE [Suspect]
     Active Substance: DESOXIMETASONE
     Indication: Rheumatoid arthritis
     Route: 003
  51. DESOXIMETASONE [Suspect]
     Active Substance: DESOXIMETASONE
     Route: 048
  52. DESOXIMETASONE [Suspect]
     Active Substance: DESOXIMETASONE
     Route: 058
  53. DESOXIMETASONE [Suspect]
     Active Substance: DESOXIMETASONE
     Route: 048
  54. DESOXIMETASONE [Suspect]
     Active Substance: DESOXIMETASONE
     Route: 048
  55. ENBREL [Suspect]
     Active Substance: ETANERCEPT
     Indication: Rheumatoid arthritis
     Route: 058
  56. ENBREL [Suspect]
     Active Substance: ETANERCEPT
     Indication: Product used for unknown indication
     Route: 058
  57. ENBREL [Suspect]
     Active Substance: ETANERCEPT
     Route: 065
  58. ENBREL [Suspect]
     Active Substance: ETANERCEPT
     Route: 058
  59. ENBREL [Suspect]
     Active Substance: ETANERCEPT
     Route: 061
  60. FOLIC ACID [Suspect]
     Active Substance: FOLIC ACID
     Indication: Rheumatoid arthritis
     Route: 065
  61. FOLIC ACID [Suspect]
     Active Substance: FOLIC ACID
     Indication: Product used for unknown indication
     Route: 065
  62. FOLIC ACID [Suspect]
     Active Substance: FOLIC ACID
     Route: 065
  63. FOLIC ACID [Suspect]
     Active Substance: FOLIC ACID
     Route: 065
  64. FOLIC ACID [Suspect]
     Active Substance: FOLIC ACID
     Route: 065
  65. FOLIC ACID [Suspect]
     Active Substance: FOLIC ACID
     Route: 058
  66. FOLIC ACID [Suspect]
     Active Substance: FOLIC ACID
     Route: 048
  67. FOLIC ACID [Suspect]
     Active Substance: FOLIC ACID
     Route: 048
  68. FOLIC ACID [Suspect]
     Active Substance: FOLIC ACID
     Route: 048
  69. FOSAMAX [Suspect]
     Active Substance: ALENDRONATE SODIUM
     Indication: Rheumatoid arthritis
     Route: 048
  70. FOSAMAX [Suspect]
     Active Substance: ALENDRONATE SODIUM
     Indication: Product used for unknown indication
     Route: 011
  71. FOSAMAX [Suspect]
     Active Substance: ALENDRONATE SODIUM
     Route: 048
  72. FOSAMAX [Suspect]
     Active Substance: ALENDRONATE SODIUM
     Route: 048
  73. FOSAMAX [Suspect]
     Active Substance: ALENDRONATE SODIUM
     Route: 065
  74. HUMIRA [Suspect]
     Active Substance: ADALIMUMAB
     Indication: Rheumatoid arthritis
     Route: 058
  75. HUMIRA [Suspect]
     Active Substance: ADALIMUMAB
     Indication: Product used for unknown indication
     Route: 058
  76. HUMIRA [Suspect]
     Active Substance: ADALIMUMAB
     Route: 058
  77. HUMIRA [Suspect]
     Active Substance: ADALIMUMAB
     Route: 058
  78. HUMIRA [Suspect]
     Active Substance: ADALIMUMAB
     Route: 058
  79. HUMIRA [Suspect]
     Active Substance: ADALIMUMAB
     Route: 065
  80. HUMIRA [Suspect]
     Active Substance: ADALIMUMAB
     Route: 058
  81. HUMIRA [Suspect]
     Active Substance: ADALIMUMAB
     Route: 058
  82. HUMIRA [Suspect]
     Active Substance: ADALIMUMAB
     Route: 058
  83. HUMIRA [Suspect]
     Active Substance: ADALIMUMAB
     Route: 058
  84. HYDROXYCHLOROQUINE [Suspect]
     Active Substance: HYDROXYCHLOROQUINE
     Indication: Rheumatoid arthritis
     Route: 065
  85. HYDROXYCHLOROQUINE [Suspect]
     Active Substance: HYDROXYCHLOROQUINE
     Route: 065
  86. HYDROXYCHLOROQUINE [Suspect]
     Active Substance: HYDROXYCHLOROQUINE
     Route: 065
  87. HYDROXYCHLOROQUINE [Suspect]
     Active Substance: HYDROXYCHLOROQUINE
     Route: 048
  88. HYDROXYCHLOROQUINE [Suspect]
     Active Substance: HYDROXYCHLOROQUINE
     Route: 048
  89. METHOTREXATE [Suspect]
     Active Substance: METHOTREXATE
     Indication: Rheumatoid arthritis
     Route: 048
  90. METHOTREXATE [Suspect]
     Active Substance: METHOTREXATE
     Indication: Product used for unknown indication
     Route: 048
  91. METHOTREXATE [Suspect]
     Active Substance: METHOTREXATE
     Route: 065
  92. METHOTREXATE [Suspect]
     Active Substance: METHOTREXATE
     Route: 048
  93. METHOTREXATE [Suspect]
     Active Substance: METHOTREXATE
     Route: 048
  94. METHOTREXATE [Suspect]
     Active Substance: METHOTREXATE
     Route: 048
  95. METHOTREXATE [Suspect]
     Active Substance: METHOTREXATE
     Route: 048
  96. METHOTREXATE [Suspect]
     Active Substance: METHOTREXATE
     Route: 048
  97. METHOTREXATE [Suspect]
     Active Substance: METHOTREXATE
     Route: 048
  98. METHOTREXATE [Suspect]
     Active Substance: METHOTREXATE
     Route: 065
  99. METHOTREXATE [Suspect]
     Active Substance: METHOTREXATE
     Route: 013
  100. METHOTREXATE [Suspect]
     Active Substance: METHOTREXATE
     Route: 013
  101. METHOTREXATE [Suspect]
     Active Substance: METHOTREXATE
     Route: 058
  102. METHOTREXATE [Suspect]
     Active Substance: METHOTREXATE
     Route: 058
  103. ORENCIA [Suspect]
     Active Substance: ABATACEPT
     Indication: Rheumatoid arthritis
     Route: 042
  104. ORENCIA [Suspect]
     Active Substance: ABATACEPT
     Indication: Product used for unknown indication
     Route: 058
  105. ORENCIA [Suspect]
     Active Substance: ABATACEPT
     Route: 058
  106. ORENCIA [Suspect]
     Active Substance: ABATACEPT
     Route: 065
  107. ORENCIA [Suspect]
     Active Substance: ABATACEPT
     Route: 042
  108. ORENCIA [Suspect]
     Active Substance: ABATACEPT
     Route: 042
  109. PHTHALYLSULFATHIAZOLE [Suspect]
     Active Substance: PHTHALYLSULFATHIAZOLE
     Indication: Rheumatoid arthritis
     Route: 065
  110. PHTHALYLSULFATHIAZOLE [Suspect]
     Active Substance: PHTHALYLSULFATHIAZOLE
     Indication: Product used for unknown indication
  111. PLAQUENIL [Suspect]
     Active Substance: HYDROXYCHLOROQUINE SULFATE
     Indication: Rheumatoid arthritis
     Route: 048
  112. PLAQUENIL [Suspect]
     Active Substance: HYDROXYCHLOROQUINE SULFATE
     Indication: Product used for unknown indication
     Route: 065
  113. PLAQUENIL [Suspect]
     Active Substance: HYDROXYCHLOROQUINE SULFATE
     Route: 065
  114. PLAQUENIL [Suspect]
     Active Substance: HYDROXYCHLOROQUINE SULFATE
     Route: 048
  115. PLAQUENIL [Suspect]
     Active Substance: HYDROXYCHLOROQUINE SULFATE
     Route: 065
  116. PLAQUENIL [Suspect]
     Active Substance: HYDROXYCHLOROQUINE SULFATE
     Route: 048
  117. PLAQUENIL [Suspect]
     Active Substance: HYDROXYCHLOROQUINE SULFATE
     Route: 065
  118. PLAQUENIL [Suspect]
     Active Substance: HYDROXYCHLOROQUINE SULFATE
     Route: 065
  119. PLAQUENIL [Suspect]
     Active Substance: HYDROXYCHLOROQUINE SULFATE
     Route: 048
  120. RITUXAN [Suspect]
     Active Substance: RITUXIMAB
     Indication: Rheumatoid arthritis
     Route: 042
  121. RITUXAN [Suspect]
     Active Substance: RITUXIMAB
     Indication: Product used for unknown indication
     Route: 042
  122. RITUXAN [Suspect]
     Active Substance: RITUXIMAB
     Route: 042
  123. RITUXAN [Suspect]
     Active Substance: RITUXIMAB
     Route: 058
  124. CORTISONE ACETATE [Suspect]
     Active Substance: CORTISONE ACETATE
     Indication: Rheumatoid arthritis
     Route: 061
  125. CORTISONE ACETATE [Suspect]
     Active Substance: CORTISONE ACETATE
     Indication: Product used for unknown indication
     Route: 065
  126. CORTISONE ACETATE [Suspect]
     Active Substance: CORTISONE ACETATE
     Route: 065
  127. CORTISONE ACETATE [Suspect]
     Active Substance: CORTISONE ACETATE
     Route: 065
  128. CORTISONE ACETATE [Suspect]
     Active Substance: CORTISONE ACETATE
     Route: 061
  129. CORTISONE ACETATE [Suspect]
     Active Substance: CORTISONE ACETATE
     Route: 065
  130. DICLOFENAC SODIUM [Suspect]
     Active Substance: DICLOFENAC SODIUM
     Indication: Product used for unknown indication
     Route: 065
  131. HYDROXYCHLOROQUINE SULFATE [Suspect]
     Active Substance: HYDROXYCHLOROQUINE SULFATE
     Indication: Rheumatoid arthritis
     Route: 065
  132. HYDROXYCHLOROQUINE SULFATE [Suspect]
     Active Substance: HYDROXYCHLOROQUINE SULFATE
     Route: 048
  133. HYDROXYCHLOROQUINE SULFATE [Suspect]
     Active Substance: HYDROXYCHLOROQUINE SULFATE
     Route: 065
  134. HYDROXYCHLOROQUINE SULFATE [Suspect]
     Active Substance: HYDROXYCHLOROQUINE SULFATE
     Route: 048
  135. HYDROXYCHLOROQUINE SULFATE [Suspect]
     Active Substance: HYDROXYCHLOROQUINE SULFATE
     Route: 065
  136. HYDROXYCHLOROQUINE SULFATE [Suspect]
     Active Substance: HYDROXYCHLOROQUINE SULFATE
     Route: 066
  137. HYDROXYCHLOROQUINE SULFATE [Suspect]
     Active Substance: HYDROXYCHLOROQUINE SULFATE
     Route: 065
  138. HYDROXYCHLOROQUINE SULFATE [Suspect]
     Active Substance: HYDROXYCHLOROQUINE SULFATE
     Route: 065
  139. HYDROXYCHLOROQUINE SULFATE [Suspect]
     Active Substance: HYDROXYCHLOROQUINE SULFATE
     Route: 048
  140. HYDROXYCHLOROQUINE SULFATE [Suspect]
     Active Substance: HYDROXYCHLOROQUINE SULFATE
     Route: 048
  141. PREDNISONE [Suspect]
     Active Substance: PREDNISONE
     Indication: Rheumatoid arthritis
     Route: 048
  142. PREDNISONE [Suspect]
     Active Substance: PREDNISONE
     Indication: Product used for unknown indication
     Route: 065
  143. PREDNISONE [Suspect]
     Active Substance: PREDNISONE
     Route: 065
  144. PREDNISONE [Suspect]
     Active Substance: PREDNISONE
     Route: 042
  145. RITUXIMAB [Suspect]
     Active Substance: RITUXIMAB
     Indication: Rheumatoid arthritis
     Route: 042
  146. RITUXIMAB [Suspect]
     Active Substance: RITUXIMAB
     Route: 041
  147. RITUXIMAB [Suspect]
     Active Substance: RITUXIMAB
     Route: 042
  148. RITUXIMAB [Suspect]
     Active Substance: RITUXIMAB
     Route: 041
  149. RITUXIMAB [Suspect]
     Active Substance: RITUXIMAB
     Route: 058
  150. SULFASALAZINE [Suspect]
     Active Substance: SULFASALAZINE
     Indication: Rheumatoid arthritis
     Route: 048
  151. SULFASALAZINE [Suspect]
     Active Substance: SULFASALAZINE
     Route: 065
  152. SULFASALAZINE [Suspect]
     Active Substance: SULFASALAZINE
     Route: 058
  153. SULFASALAZINE [Suspect]
     Active Substance: SULFASALAZINE
     Route: 065
  154. SULFASALAZINE [Suspect]
     Active Substance: SULFASALAZINE
     Route: 065
  155. SULFASALAZINE [Suspect]
     Active Substance: SULFASALAZINE
     Route: 048
  156. SULFASALAZINE [Suspect]
     Active Substance: SULFASALAZINE
     Route: 048
  157. SULFASALAZINE [Suspect]
     Active Substance: SULFASALAZINE
     Route: 048
  158. SULFASALAZINE [Suspect]
     Active Substance: SULFASALAZINE
     Route: 065
  159. SULFASALAZINE [Suspect]
     Active Substance: SULFASALAZINE
     Route: 048
  160. SULFASALAZINE [Suspect]
     Active Substance: SULFASALAZINE
     Route: 065
  161. SULFASALAZINE [Suspect]
     Active Substance: SULFASALAZINE
     Route: 048
  162. PSEUDOEPHEDRINE HYDROCHLORIDE [Suspect]
     Active Substance: PSEUDOEPHEDRINE HYDROCHLORIDE
     Indication: Rheumatoid arthritis
     Route: 065
  163. PSEUDOEPHEDRINE HYDROCHLORIDE [Suspect]
     Active Substance: PSEUDOEPHEDRINE HYDROCHLORIDE
     Indication: Product used for unknown indication
     Route: 065
  164. XELJANZ [Suspect]
     Active Substance: TOFACITINIB CITRATE
     Indication: Rheumatoid arthritis
     Route: 048
  165. XELJANZ [Suspect]
     Active Substance: TOFACITINIB CITRATE
     Indication: Product used for unknown indication
     Route: 065
  166. XELJANZ [Suspect]
     Active Substance: TOFACITINIB CITRATE
     Route: 065
  167. XELJANZ [Suspect]
     Active Substance: TOFACITINIB CITRATE
     Route: 065
  168. XELJANZ [Suspect]
     Active Substance: TOFACITINIB CITRATE
     Route: 048
  169. XELJANZ [Suspect]
     Active Substance: TOFACITINIB CITRATE
     Route: 048
  170. XELJANZ [Suspect]
     Active Substance: TOFACITINIB CITRATE
     Route: 065
  171. PREDNISONE [Suspect]
     Active Substance: PREDNISONE
     Indication: Rheumatoid arthritis
     Route: 065
  172. PREDNISONE [Suspect]
     Active Substance: PREDNISONE
     Route: 065
  173. OTEZLA [Suspect]
     Active Substance: APREMILAST
     Indication: Product used for unknown indication
     Route: 048
  174. OTEZLA [Suspect]
     Active Substance: APREMILAST
     Route: 048
  175. TOPICORT [Suspect]
     Active Substance: DESOXIMETASONE
     Indication: Rheumatoid arthritis
     Route: 058
  176. TOPICORT [Suspect]
     Active Substance: DESOXIMETASONE
     Route: 003
  177. TOPICORT [Suspect]
     Active Substance: DESOXIMETASONE
     Route: 048
  178. TOPICORT [Suspect]
     Active Substance: DESOXIMETASONE
     Route: 065
  179. TOFACITINIB CITRATE [Suspect]
     Active Substance: TOFACITINIB CITRATE
     Indication: Rheumatoid arthritis
     Route: 048
  180. TOFACITINIB CITRATE [Suspect]
     Active Substance: TOFACITINIB CITRATE
     Indication: Product used for unknown indication
     Route: 048
  181. TOFACITINIB CITRATE [Suspect]
     Active Substance: TOFACITINIB CITRATE
     Route: 065
  182. TOFACITINIB CITRATE [Suspect]
     Active Substance: TOFACITINIB CITRATE
     Route: 065
  183. GOLIMUMAB [Suspect]
     Active Substance: GOLIMUMAB
     Indication: Rheumatoid arthritis
     Route: 065
  184. ACETAMINOPHEN [Suspect]
     Active Substance: ACETAMINOPHEN
  185. ADALIMUMAB [Suspect]
     Active Substance: ADALIMUMAB
     Indication: Product used for unknown indication
     Route: 058
  186. ADALIMUMAB [Suspect]
     Active Substance: ADALIMUMAB
     Indication: Rheumatoid arthritis
     Route: 058
  187. LEFLUNOMIDE [Suspect]
     Active Substance: LEFLUNOMIDE
     Indication: Product used for unknown indication
     Route: 065
  188. LEFLUNOMIDE [Suspect]
     Active Substance: LEFLUNOMIDE
     Indication: Product used for unknown indication
     Route: 048
  189. LEFLUNOMIDE [Suspect]
     Active Substance: LEFLUNOMIDE
     Indication: Rheumatoid arthritis
     Route: 065
  190. LEFLUNOMIDE [Suspect]
     Active Substance: LEFLUNOMIDE
     Route: 048
  191. LEFLUNOMIDE [Suspect]
     Active Substance: LEFLUNOMIDE
     Route: 048
  192. LYRICA [Suspect]
     Active Substance: PREGABALIN
     Indication: Product used for unknown indication
     Route: 065
  193. MYCOPHENOLATE MOFETIL [Suspect]
     Active Substance: MYCOPHENOLATE MOFETIL
     Indication: Product used for unknown indication
     Route: 065
  194. ALENDRONATE SODIUM [Suspect]
     Active Substance: ALENDRONATE SODIUM
     Indication: Rheumatoid arthritis
     Route: 048
  195. ALENDRONATE SODIUM [Suspect]
     Active Substance: ALENDRONATE SODIUM
     Indication: Product used for unknown indication
     Route: 065
  196. ALENDRONATE SODIUM [Suspect]
     Active Substance: ALENDRONATE SODIUM
     Route: 065
  197. ALENDRONATE SODIUM [Suspect]
     Active Substance: ALENDRONATE SODIUM
     Route: 048
  198. HYDROXYCHLOROQUINE DIPHOSPHATE [Suspect]
     Active Substance: HYDROXYCHLOROQUINE DIPHOSPHATE
     Indication: Product used for unknown indication
     Route: 065
  199. ETANERCEPT [Suspect]
     Active Substance: ETANERCEPT
     Indication: Rheumatoid arthritis
     Route: 058
  200. PSEUDOEPHEDRINE HYDROCHLORIDE\TRIPROLIDINE HYDROCHLORIDE [Suspect]
     Active Substance: PSEUDOEPHEDRINE HYDROCHLORIDE\TRIPROLIDINE HYDROCHLORIDE
     Indication: Rheumatoid arthritis
     Route: 065
  201. TOCILIZUMAB [Suspect]
     Active Substance: TOCILIZUMAB
     Indication: Rheumatoid arthritis
     Route: 058
  202. TOCILIZUMAB [Suspect]
     Active Substance: TOCILIZUMAB
     Route: 065
  203. TOCILIZUMAB [Suspect]
     Active Substance: TOCILIZUMAB
     Route: 005
  204. HYDROXYCHLOROQUINE SULFATE [Suspect]
     Active Substance: HYDROXYCHLOROQUINE SULFATE
     Indication: Rheumatoid arthritis
     Route: 065
  205. SARILUMAB [Suspect]
     Active Substance: SARILUMAB
     Indication: Rheumatoid arthritis
     Route: 065
  206. TOPICORT [Suspect]
     Active Substance: DESOXIMETASONE
     Indication: Rheumatoid arthritis
     Route: 048
  207. TOPICORT [Suspect]
     Active Substance: DESOXIMETASONE
     Route: 058
  208. PREDNISONE [Suspect]
     Active Substance: PREDNISONE
     Indication: Rheumatoid arthritis
     Route: 048
  209. HYDROCORTISONE ACETATE [Suspect]
     Active Substance: HYDROCORTISONE ACETATE
     Indication: Rheumatoid arthritis
     Route: 061
  210. FOLIC ACID [Suspect]
     Active Substance: FOLIC ACID
     Indication: Rheumatoid arthritis
     Route: 048
  211. FOLIC ACID [Suspect]
     Active Substance: FOLIC ACID
     Route: 048
  212. FOLIC ACID [Suspect]
     Active Substance: FOLIC ACID
     Route: 048
  213. FOLIC ACID [Suspect]
     Active Substance: FOLIC ACID
     Route: 065
  214. DOXYCYCLINE [Suspect]
     Active Substance: DOXYCYCLINE
     Indication: Product used for unknown indication
     Route: 065
  215. ALENDRONIC ACID [Suspect]
     Active Substance: ALENDRONIC ACID
     Indication: Rheumatoid arthritis
     Route: 065
  216. ALENDRONIC ACID [Suspect]
     Active Substance: ALENDRONIC ACID
     Route: 048
  217. ALENDRONIC ACID [Suspect]
     Active Substance: ALENDRONIC ACID
     Route: 065
  218. DICLOFENAC [Suspect]
     Active Substance: DICLOFENAC
     Indication: Product used for unknown indication
     Route: 065
  219. ERELZI [Suspect]
     Active Substance: ETANERCEPT-SZZS
     Indication: Rheumatoid arthritis
     Route: 065
  220. CORTISONE [Suspect]
     Active Substance: CORTISONE
     Indication: Rheumatoid arthritis
     Route: 048
  221. METHOTREXATE SODIUM [Suspect]
     Active Substance: METHOTREXATE SODIUM
     Indication: Rheumatoid arthritis
     Route: 048
  222. FLUMETHASONE PIVALATE [Suspect]
     Active Substance: FLUMETHASONE PIVALATE
     Indication: Rheumatoid arthritis
     Route: 058
  223. ZYRTEC-D [Suspect]
     Active Substance: CETIRIZINE HYDROCHLORIDE\PSEUDOEPHEDRINE HYDROCHLORIDE
     Indication: Rheumatoid arthritis
     Route: 065
  224. NAPROXEN SODIUM [Suspect]
     Active Substance: NAPROXEN SODIUM
     Indication: Rheumatoid arthritis
     Route: 065
  225. CERTOLIZUMAB PEGOL [Suspect]
     Active Substance: CERTOLIZUMAB PEGOL
     Indication: Product used for unknown indication
     Route: 058
  226. COSENTYX [Suspect]
     Active Substance: SECUKINUMAB
     Indication: Psoriatic arthropathy
     Route: 065
  227. CELEBREX [Suspect]
     Active Substance: CELECOXIB
     Indication: Product used for unknown indication
     Route: 048
  228. ABATACEPT [Suspect]
     Active Substance: ABATACEPT
     Indication: Rheumatoid arthritis
     Route: 065
  229. KEVZARA [Suspect]
     Active Substance: SARILUMAB
     Indication: Rheumatoid arthritis
     Route: 065
  230. SULFATHALIDINE [Suspect]
     Active Substance: PHTHALYLSULFATHIAZOLE
     Indication: Rheumatoid arthritis
     Route: 065
  231. FOLIC ACID [Suspect]
     Active Substance: FOLIC ACID
     Indication: Rheumatoid arthritis
     Route: 065
  232. FLUMETHASONE PIVALATE [Suspect]
     Active Substance: FLUMETHASONE PIVALATE
     Indication: Rheumatoid arthritis
     Route: 058
  233. XELJANZ [Concomitant]
     Active Substance: TOFACITINIB CITRATE
     Indication: Rheumatoid arthritis
     Route: 065
  234. XELJANZ [Concomitant]
     Active Substance: TOFACITINIB CITRATE
     Indication: Psoriatic arthropathy
     Route: 048
  235. XELJANZ [Concomitant]
     Active Substance: TOFACITINIB CITRATE
     Route: 048
  236. DESOXIMETASONE [Concomitant]
     Active Substance: DESOXIMETASONE
     Indication: Product used for unknown indication
     Route: 065
  237. ACETAMINOPHEN\PROPOXYPHENE HYDROCHLORIDE [Concomitant]
     Active Substance: ACETAMINOPHEN\PROPOXYPHENE HYDROCHLORIDE
     Indication: Product used for unknown indication
     Route: 065
  238. MELOXICAM [Concomitant]
     Active Substance: MELOXICAM
     Indication: Product used for unknown indication
     Route: 065
  239. SYNTHROID [Concomitant]
     Active Substance: LEVOTHYROXINE SODIUM
     Indication: Product used for unknown indication
     Route: 065
  240. PREDNISOLONE [Concomitant]
     Active Substance: PREDNISOLONE
     Indication: Product used for unknown indication
     Route: 065
  241. PIROXICAM [Concomitant]
     Active Substance: PIROXICAM
     Indication: Product used for unknown indication
     Route: 065
  242. FOLIC ACID [Concomitant]
     Active Substance: FOLIC ACID
     Indication: Product used for unknown indication
     Route: 065
  243. HYDROXYCHLOROQUINE [Concomitant]
     Active Substance: HYDROXYCHLOROQUINE
     Indication: Product used for unknown indication
     Route: 065
  244. ATASOL WITH CODEINE-CAFFEINE [Concomitant]
     Indication: Product used for unknown indication
     Route: 065
  245. TOFACITINIB CITRATE [Concomitant]
     Active Substance: TOFACITINIB CITRATE
     Indication: Product used for unknown indication
     Route: 048
  246. METHOTREXATE [Concomitant]
     Active Substance: METHOTREXATE
     Indication: Product used for unknown indication
     Route: 065
  247. DEXAMETHASONE [Concomitant]
     Active Substance: DEXAMETHASONE
     Indication: Product used for unknown indication
     Route: 065
  248. DICLOFENAC [Concomitant]
     Active Substance: DICLOFENAC
     Indication: Product used for unknown indication
     Route: 065
  249. SALAZOPYRINE [Concomitant]
     Active Substance: SULFASALAZINE
     Indication: Rheumatoid arthritis
     Route: 048
  250. SALAZOPYRINE [Concomitant]
     Active Substance: SULFASALAZINE
     Indication: Product used for unknown indication
     Route: 065
  251. LEFLUNOMIDE [Concomitant]
     Active Substance: LEFLUNOMIDE
     Indication: Rheumatoid arthritis
     Route: 065
  252. LEFLUNOMIDE [Concomitant]
     Active Substance: LEFLUNOMIDE
     Route: 065
  253. ATASOL                             /00020001/ [Concomitant]
     Indication: Product used for unknown indication
     Route: 065
  254. TOFACITINIB [Concomitant]
     Active Substance: TOFACITINIB
     Indication: Product used for unknown indication
     Route: 065
  255. ZYRTEC                             /00884302/ [Concomitant]
     Indication: Product used for unknown indication
     Route: 065
  256. IBUPROFEN [Concomitant]
     Active Substance: IBUPROFEN
     Indication: Product used for unknown indication
     Route: 065
  257. PRINIVIL [Concomitant]
     Active Substance: LISINOPRIL
     Indication: Product used for unknown indication
     Route: 065
  258. CHOLECALCIFEROL [Concomitant]
     Active Substance: CHOLECALCIFEROL
     Indication: Product used for unknown indication
     Route: 065
  259. CALCIUM [Concomitant]
     Active Substance: CALCIUM
     Indication: Product used for unknown indication
     Route: 065
  260. PANTOPRAZOLE [Concomitant]
     Active Substance: PANTOPRAZOLE
     Indication: Product used for unknown indication
     Route: 065
  261. QUETIAPINE [Concomitant]
     Active Substance: QUETIAPINE
     Indication: Product used for unknown indication
     Route: 065
  262. QUETIAPINE [Concomitant]
     Active Substance: QUETIAPINE
     Route: 065
  263. RAMIPRIL [Concomitant]
     Active Substance: RAMIPRIL
     Indication: Product used for unknown indication
     Route: 065
  264. CALCIUM GLUCONATE [Concomitant]
     Active Substance: CALCIUM GLUCONATE
     Indication: Product used for unknown indication
     Route: 065
  265. MAGNESIUM [Concomitant]
     Active Substance: MAGNESIUM
     Indication: Product used for unknown indication
     Route: 065
  266. HYDROXYCHLOROQUINE SULFATE [Concomitant]
     Active Substance: HYDROXYCHLOROQUINE SULFATE
     Indication: Rheumatoid arthritis
     Route: 065
  267. PREDNISONE [Concomitant]
     Active Substance: PREDNISONE
     Indication: Product used for unknown indication
     Route: 065
  268. RISEDRONATE SODIUM [Concomitant]
     Active Substance: RISEDRONATE SODIUM
     Indication: Product used for unknown indication
     Route: 065
  269. SULFASALAZINE [Concomitant]
     Active Substance: SULFASALAZINE
     Indication: Product used for unknown indication
     Route: 065
  270. ACETAMINOPHEN\CAFFEINE\DIHYDROCODEINE BITARTRATE [Concomitant]
     Active Substance: ACETAMINOPHEN\CAFFEINE\DIHYDROCODEINE BITARTRATE
     Indication: Rheumatoid arthritis
     Route: 065
  271. ACETAMINOPHEN\CODEINE PHOSPHATE [Concomitant]
     Active Substance: ACETAMINOPHEN\CODEINE PHOSPHATE
     Indication: Rheumatoid arthritis
     Route: 065
  272. LISINOPRIL [Concomitant]
     Active Substance: LISINOPRIL
     Indication: Product used for unknown indication
     Route: 065
  273. LISINOPRIL [Concomitant]
     Active Substance: LISINOPRIL
     Indication: Product used for unknown indication
     Route: 065
  274. ACETAMINOPHEN\CAFFEINE\CODEINE PHOSPHATE [Concomitant]
     Active Substance: ACETAMINOPHEN\CAFFEINE\CODEINE PHOSPHATE
     Indication: Product used for unknown indication
     Route: 065
  275. CAFFEINE CITRATE [Concomitant]
     Active Substance: CAFFEINE CITRATE
     Indication: Product used for unknown indication
     Route: 065
  276. CODEINE [Concomitant]
     Active Substance: CODEINE
     Indication: Product used for unknown indication
     Route: 065
  277. CODEINE [Concomitant]
     Active Substance: CODEINE
     Route: 065
  278. CAFFEINE [Concomitant]
     Active Substance: CAFFEINE
     Indication: Product used for unknown indication
     Route: 065
  279. DICLOFENAC POTASSIUM [Concomitant]
     Active Substance: DICLOFENAC POTASSIUM
     Indication: Product used for unknown indication
     Route: 065

REACTIONS (100)
  - Duodenal ulcer perforation [Not Recovered/Not Resolved]
  - Pemphigus [Not Recovered/Not Resolved]
  - Pericarditis [Not Recovered/Not Resolved]
  - Anti-cyclic citrullinated peptide antibody positive [Not Recovered/Not Resolved]
  - Arthropathy [Not Recovered/Not Resolved]
  - Hand deformity [Not Recovered/Not Resolved]
  - Adverse event [Not Recovered/Not Resolved]
  - Maternal exposure during pregnancy [Recovered/Resolved]
  - Discomfort [Not Recovered/Not Resolved]
  - Glossodynia [Not Recovered/Not Resolved]
  - Wound [Not Recovered/Not Resolved]
  - Synovitis [Not Recovered/Not Resolved]
  - Knee arthroplasty [Not Recovered/Not Resolved]
  - Contraindicated product administered [Not Recovered/Not Resolved]
  - Drug intolerance [Not Recovered/Not Resolved]
  - Product use issue [Not Recovered/Not Resolved]
  - Hip arthroplasty [Not Recovered/Not Resolved]
  - Swelling [Not Recovered/Not Resolved]
  - Alopecia [Not Recovered/Not Resolved]
  - Systemic lupus erythematosus [Not Recovered/Not Resolved]
  - Helicobacter infection [Not Recovered/Not Resolved]
  - Rheumatoid arthritis [Not Recovered/Not Resolved]
  - Abdominal discomfort [Not Recovered/Not Resolved]
  - Condition aggravated [Not Recovered/Not Resolved]
  - Infusion related reaction [Not Recovered/Not Resolved]
  - Pain [Not Recovered/Not Resolved]
  - Rash [Not Recovered/Not Resolved]
  - Injury [Unknown]
  - Musculoskeletal stiffness [Not Recovered/Not Resolved]
  - Blister [Not Recovered/Not Resolved]
  - General physical health deterioration [Not Recovered/Not Resolved]
  - Live birth [Not Recovered/Not Resolved]
  - Joint swelling [Not Recovered/Not Resolved]
  - Exposure during pregnancy [Not Recovered/Not Resolved]
  - Off label use [Not Recovered/Not Resolved]
  - Fibromyalgia [Not Recovered/Not Resolved]
  - Wheezing [Not Recovered/Not Resolved]
  - Vomiting [Not Recovered/Not Resolved]
  - Oedema [Not Recovered/Not Resolved]
  - Rheumatoid factor positive [Not Recovered/Not Resolved]
  - Abdominal pain upper [Not Recovered/Not Resolved]
  - Adverse drug reaction [Not Recovered/Not Resolved]
  - Psoriatic arthropathy [Unknown]
  - Liver injury [Not Recovered/Not Resolved]
  - Intentional product use issue [Not Recovered/Not Resolved]
  - Type 2 diabetes mellitus [Not Recovered/Not Resolved]
  - Rheumatic fever [Not Recovered/Not Resolved]
  - Swollen joint count increased [Not Recovered/Not Resolved]
  - Blood cholesterol increased [Not Recovered/Not Resolved]
  - Sciatica [Unknown]
  - Decreased appetite [Not Recovered/Not Resolved]
  - Hypoaesthesia [Not Recovered/Not Resolved]
  - Mobility decreased [Not Recovered/Not Resolved]
  - Rheumatoid arthritis [Not Recovered/Not Resolved]
  - Headache [Not Recovered/Not Resolved]
  - Sinusitis [Unknown]
  - Pregnancy [Not Recovered/Not Resolved]
  - Incorrect route of product administration [Not Recovered/Not Resolved]
  - Fatigue [Not Recovered/Not Resolved]
  - Drug ineffective [Not Recovered/Not Resolved]
  - Arthralgia [Not Recovered/Not Resolved]
  - Hypersensitivity [Not Recovered/Not Resolved]
  - Treatment failure [Not Recovered/Not Resolved]
  - Hepatic enzyme increased [Not Recovered/Not Resolved]
  - Prescribed overdose [Not Recovered/Not Resolved]
  - Diarrhoea [Not Recovered/Not Resolved]
  - Nausea [Unknown]
  - Therapeutic response decreased [Not Recovered/Not Resolved]
  - Malaise [Not Recovered/Not Resolved]
  - Therapeutic product effect decreased [Not Recovered/Not Resolved]
  - Drug hypersensitivity [Unknown]
  - Hypertension [Not Recovered/Not Resolved]
  - Dizziness [Not Recovered/Not Resolved]
  - Abdominal pain [Not Recovered/Not Resolved]
  - Glossodynia [Recovered/Resolved]
  - Breast cancer stage III [Not Recovered/Not Resolved]
  - Memory impairment [Not Recovered/Not Resolved]
  - Disability [Not Recovered/Not Resolved]
  - Sleep disorder [Not Recovered/Not Resolved]
  - Joint range of motion decreased [Not Recovered/Not Resolved]
  - Depression [Not Recovered/Not Resolved]
  - Exposure during pregnancy [Not Recovered/Not Resolved]
  - Product use in unapproved indication [Not Recovered/Not Resolved]
  - Drug intolerance [Not Recovered/Not Resolved]
  - Adjustment disorder with depressed mood [Unknown]
  - Gait disturbance [Not Recovered/Not Resolved]
  - Grip strength decreased [Unknown]
  - Amnesia [Unknown]
  - Dislocation of vertebra [Unknown]
  - Delirium [Unknown]
  - Muscular weakness [Unknown]
  - Seronegative arthritis [Unknown]
  - Pain in extremity [Unknown]
  - Spinal fusion surgery [Unknown]
  - Weight decreased [Unknown]
  - Spondylitis [Unknown]
  - Wound infection [Unknown]
  - Infection [Unknown]
  - Treatment noncompliance [Not Recovered/Not Resolved]
  - Liver function test increased [Not Recovered/Not Resolved]

NARRATIVE: CASE EVENT DATE: 20150901
